FAERS Safety Report 6498212-9 (Version None)
Quarter: 2009Q4

REPORT INFORMATION
  Report Type: 
  Country: None (occurrence: None)
  Receive Date: 20091215
  Receipt Date: 20091211
  Transmission Date: 20100525
  Serious: Yes (Hospitalization)
  Sender: FDA-Public Use
  Company Number: A0834774A

PATIENT
  Age: 12 Year
  Sex: Male

DRUGS (4)
  1. ADVAIR DISKUS 100/50 [Suspect]
     Indication: ASTHMA
     Route: 055
     Dates: start: 20080301, end: 20090414
  2. VENTOLIN [Concomitant]
  3. SINGULAIR [Concomitant]
  4. ADDERALL 10 [Concomitant]

REACTIONS (7)
  - ASTHMA [None]
  - BONE PAIN [None]
  - MOVEMENT DISORDER [None]
  - MYALGIA [None]
  - RASH [None]
  - URTICARIA [None]
  - WHEEZING [None]
